FAERS Safety Report 6977716-6 (Version None)
Quarter: 2010Q3

REPORT INFORMATION
  Report Type: 
  Country: None (occurrence: None)
  Receive Date: 20100913
  Receipt Date: 20100901
  Transmission Date: 20110219
  Serious: No
  Sender: FDA-Public Use
  Company Number: US-BIOGENIDEC-2010BI030855

PATIENT
  Age: 41 Year
  Sex: Male

DRUGS (3)
  1. TYSABRI [Suspect]
     Indication: MULTIPLE SCLEROSIS
     Route: 042
     Dates: start: 20061122, end: 20070227
  2. TYSABRI [Suspect]
     Route: 042
     Dates: start: 20090904, end: 20100512
  3. AVONEX [Concomitant]
     Indication: MULTIPLE SCLEROSIS
     Route: 030
     Dates: start: 19990101

REACTIONS (3)
  - DRUG INEFFECTIVE [None]
  - GAIT DISTURBANCE [None]
  - HYPOAESTHESIA [None]
